FAERS Safety Report 26064958 (Version 1)
Quarter: 2025Q4

REPORT INFORMATION
  Report Type: Spontaneous
  Country: US (occurrence: US)
  Receive Date: 20251119
  Receipt Date: 20251119
  Transmission Date: 20260118
  Serious: Yes (Death)
  Sender: PFIZER
  Company Number: US-PFIZER INC-202500125443

PATIENT
  Age: 71 Year
  Sex: Female
  Weight: 68.209 kg

DRUGS (2)
  1. LORBRENA [Suspect]
     Active Substance: LORLATINIB
     Indication: Bone cancer
     Dosage: 100 MG, DAILY (1 TABLET DAILY)
     Route: 048
  2. LORBRENA [Suspect]
     Active Substance: LORLATINIB
     Indication: Lung neoplasm malignant

REACTIONS (1)
  - Death [Fatal]
